FAERS Safety Report 16778833 (Version 1)
Quarter: 2019Q3

REPORT INFORMATION
  Report Type: Spontaneous
  Country: FR (occurrence: FR)
  Receive Date: 20190906
  Receipt Date: 20190906
  Transmission Date: 20191005
  Serious: Yes (Hospitalization)
  Sender: FDA-Public Use
  Company Number: FR-ZYDUS-040286

PATIENT
  Age: 62 Year
  Sex: Male
  Weight: 126 kg

DRUGS (7)
  1. BISOPROLOL/BISOPROLOL FUMARATE/BISOPROLOL HEMIFUMARATE [Concomitant]
     Indication: CARDIAC FAILURE
     Route: 048
  2. METFORMIN [Suspect]
     Active Substance: METFORMIN HYDROCHLORIDE
     Indication: DIABETES MELLITUS
     Route: 048
     Dates: end: 20190801
  3. FUROSEMIDE. [Concomitant]
     Active Substance: FUROSEMIDE
     Indication: HYPERTENSION
     Route: 048
     Dates: end: 20190801
  4. LEVOCETIRIZINE/LEVOCETIRIZINE DIHYDROCHLORIDE [Concomitant]
     Indication: PRODUCT USED FOR UNKNOWN INDICATION
     Route: 048
     Dates: end: 201908
  5. TELMISARTAN. [Concomitant]
     Active Substance: TELMISARTAN
     Indication: DYSLIPIDAEMIA
     Route: 048
     Dates: end: 20190801
  6. FLECAINE [Concomitant]
     Active Substance: FLECAINIDE
     Indication: ARRHYTHMIA
     Route: 048
  7. FLUINDIONE [Concomitant]
     Active Substance: FLUINDIONE
     Indication: PRODUCT USED FOR UNKNOWN INDICATION
     Route: 048
     Dates: end: 20190801

REACTIONS (4)
  - Acute kidney injury [Recovering/Resolving]
  - Drug level increased [Recovered/Resolved]
  - Lactic acidosis [Recovered/Resolved]
  - Hyperkalaemia [Recovered/Resolved]

NARRATIVE: CASE EVENT DATE: 20190801
